FAERS Safety Report 6917338-6 (Version None)
Quarter: 2010Q3

REPORT INFORMATION
  Report Type: 
  Country: None (occurrence: None)
  Receive Date: 20100805
  Receipt Date: 20100721
  Transmission Date: 20110219
  Serious: Yes (Death, Hospitalization, Other)
  Sender: FDA-Public Use
  Company Number: AE 2010-137

PATIENT
  Age: 66 Year
  Sex: Female

DRUGS (1)
  1. FAZACLO ODT [Suspect]
     Dosage: 300 MG DAILY PO
     Route: 048
     Dates: start: 20100415, end: 20100627

REACTIONS (6)
  - AGRANULOCYTOSIS [None]
  - COMA [None]
  - LEUKOPENIA [None]
  - NEUTROPENIA [None]
  - RESPIRATORY FAILURE [None]
  - VASCULITIS CEREBRAL [None]
